FAERS Safety Report 19565392 (Version 1)
Quarter: 2021Q3

REPORT INFORMATION
  Report Type: Spontaneous
  Country: CA (occurrence: CA)
  Receive Date: 20210714
  Receipt Date: 20210714
  Transmission Date: 20211014
  Serious: Yes (Hospitalization, Other)
  Sender: FDA-Public Use
  Company Number: CA-VALIDUS PHARMACEUTICALS LLC-VDP-2021-000070

PATIENT
  Age: 56 Year
  Sex: Female

DRUGS (2)
  1. FUROSEMIDE. [Suspect]
     Active Substance: FUROSEMIDE
     Indication: CARDIAC FAILURE CONGESTIVE
     Dosage: UNK
     Route: 065
  2. METHOTREXATE. [Suspect]
     Active Substance: METHOTREXATE
     Indication: DERMATITIS EXFOLIATIVE GENERALISED
     Dosage: 7.5 MILLIGRAM, Q12H
     Route: 048

REACTIONS (6)
  - Accidental exposure to product [Unknown]
  - Extra dose administered [Unknown]
  - Skin necrosis [Recovered/Resolved]
  - Pancytopenia [Recovered/Resolved]
  - Drug interaction [Unknown]
  - Neutropenia [Recovered/Resolved]
